FAERS Safety Report 10700167 (Version 1)
Quarter: 2015Q1

REPORT INFORMATION
  Report Type: Spontaneous
  Country: IT (occurrence: None)
  Receive Date: 20150107
  Receipt Date: 20150107
  Transmission Date: 20150721
  Serious: Yes (Death)
  Sender: FDA-Public Use
  Company Number: FK201406543

PATIENT

DRUGS (7)
  1. METHOREXATE [Suspect]
     Active Substance: METHOTREXATE SODIUM
     Indication: PRIMARY MEDIASTINAL LARGE B-CELL LYMPHOMA
  2. LEUCOVORIN CALCIUM (MANUFACTURER UNKNOWN) (LEUCOVORIN CALCIUM) (LEUCOVORIN CALCIUM) [Suspect]
     Active Substance: LEUCOVORIN CALCIUM
     Indication: PRIMARY MEDIASTINAL LARGE B-CELL LYMPHOMA
  3. CYCLOPHOSPHAMIDE (CYCLOPHOSPHAMIDE) (CYCLOPHOSPHAMIDE) [Suspect]
     Active Substance: CYCLOPHOSPHAMIDE
     Indication: PRIMARY MEDIASTINAL LARGE B-CELL LYMPHOMA
  4. VINCRISTINE (VINCRISTINE) (VINCRISTINE) [Suspect]
     Active Substance: VINCRISTINE
     Indication: PRIMARY MEDIASTINAL LARGE B-CELL LYMPHOMA
  5. PREDNISONE (PREDNISONE) (PREDNISONE) [Suspect]
     Active Substance: PREDNISONE
     Indication: PRIMARY MEDIASTINAL LARGE B-CELL LYMPHOMA
  6. BLEOMYCIN [Suspect]
     Active Substance: BLEOMYCIN SULFATE
     Indication: PRIMARY MEDIASTINAL LARGE B-CELL LYMPHOMA
  7. DOXORUBICIN (DOXORUBICIN) (DOXORUBICIN) [Suspect]
     Active Substance: DOXORUBICIN
     Indication: PRIMARY MEDIASTINAL LARGE B-CELL LYMPHOMA

REACTIONS (3)
  - Sudden death [None]
  - Arrhythmia [None]
  - Cardiotoxicity [None]
